FAERS Safety Report 14576110 (Version 3)
Quarter: 2018Q4

REPORT INFORMATION
  Report Type: Report from Study
  Country: ES (occurrence: ES)
  Receive Date: 20180227
  Receipt Date: 20181221
  Transmission Date: 20190204
  Serious: Yes (Hospitalization)
  Sender: FDA-Public Use
  Company Number: ES-VELOXIS PHARMACEUTICALS-2042603

PATIENT
  Age: 59 Year
  Sex: Male
  Weight: 87 kg

DRUGS (3)
  1. ENVARSUS XR [Suspect]
     Active Substance: TACROLIMUS
     Indication: LIVER TRANSPLANT
     Dosage: 3 MG, QD
     Route: 048
     Dates: start: 20180122, end: 20180130
  2. ENVARSUS XR [Suspect]
     Active Substance: TACROLIMUS
     Dosage: 2.75 MG, QD
     Route: 048
     Dates: start: 20180131, end: 20180206
  3. ENVARSUS XR [Suspect]
     Active Substance: TACROLIMUS
     Dosage: 3 MG, QD
     Route: 048
     Dates: start: 20180207, end: 20180213

REACTIONS (2)
  - Cholestasis [Recovered/Resolved]
  - Biliary dilatation [Recovered/Resolved]

NARRATIVE: CASE EVENT DATE: 20180219
